FAERS Safety Report 4744211-4 (Version None)
Quarter: 2005Q3

REPORT INFORMATION
  Report Type: 
  Country: None (occurrence: None)
  Receive Date: 20050809
  Receipt Date: 20050801
  Transmission Date: 20060218
  Serious: Yes (Other)
  Sender: FDA-Public Use
  Company Number: ST-2005-008531

PATIENT
  Age: 81 Year
  Sex: Female

DRUGS (1)
  1. OLMETEC [Suspect]
     Indication: HYPERTENSION

REACTIONS (1)
  - IDIOPATHIC THROMBOCYTOPENIC PURPURA [None]
